FAERS Safety Report 10069431 (Version 1)
Quarter: 2014Q2

REPORT INFORMATION
  Report Type: Spontaneous
  Country: CA (occurrence: CA)
  Receive Date: 20140410
  Receipt Date: 20140410
  Transmission Date: 20141212
  Serious: Yes (Hospitalization)
  Sender: FDA-Public Use
  Company Number: CA-ROCHE-1375698

PATIENT
  Age: 68 Year
  Sex: Female

DRUGS (15)
  1. ACTEMRA [Suspect]
     Indication: PRODUCT USED FOR UNKNOWN INDICATION
     Route: 042
  2. APO-NADOL [Suspect]
     Indication: PRODUCT USED FOR UNKNOWN INDICATION
     Route: 065
  3. COVERSYL [Suspect]
     Indication: PRODUCT USED FOR UNKNOWN INDICATION
     Route: 065
  4. LIPITOR [Suspect]
     Indication: PRODUCT USED FOR UNKNOWN INDICATION
     Route: 065
  5. SYNTHROID [Suspect]
     Indication: PRODUCT USED FOR UNKNOWN INDICATION
     Route: 065
  6. ASPIRIN [Concomitant]
  7. XANAX [Concomitant]
     Route: 065
  8. VITAMIN K [Concomitant]
  9. ZOCOR [Concomitant]
     Route: 065
  10. TYLENOL [Concomitant]
  11. LASIX [Concomitant]
  12. ESTRADIOL [Concomitant]
  13. EFFEXOR XR [Concomitant]
     Route: 065
  14. DELATESTRYL [Concomitant]
     Route: 030
  15. COZAAR [Concomitant]
     Route: 065

REACTIONS (2)
  - Atrial fibrillation [Not Recovered/Not Resolved]
  - Cardiac failure congestive [Not Recovered/Not Resolved]
